FAERS Safety Report 14589862 (Version 2)
Quarter: 2018Q2

REPORT INFORMATION
  Report Type: Report from Study
  Country: JP (occurrence: JP)
  Receive Date: 20180302
  Receipt Date: 20180503
  Transmission Date: 20180711
  Serious: Yes (Hospitalization, Other)
  Sender: FDA-Public Use
  Company Number: JP-AMGEN-JPNCT2018028106

PATIENT
  Age: 80 Year
  Sex: Male

DRUGS (65)
  1. DARBEPOETIN ALFA [Suspect]
     Active Substance: DARBEPOETIN ALFA
     Indication: PRODUCT USED FOR UNKNOWN INDICATION
     Dosage: 240 MUG, QWK
     Route: 058
     Dates: start: 20170922
  2. DARBEPOETIN ALFA [Suspect]
     Active Substance: DARBEPOETIN ALFA
     Dosage: 240 MUG, QWK
     Route: 058
     Dates: start: 20171016, end: 20171120
  3. FUROSEMIDE. [Suspect]
     Active Substance: FUROSEMIDE
     Indication: CARDIAC FAILURE CHRONIC
     Dosage: 60 MG, UNK
     Route: 048
     Dates: start: 20171004, end: 20171116
  4. LOXOPROFEN [Concomitant]
     Active Substance: LOXOPROFEN
     Dosage: 60 MG, UNK
     Route: 048
     Dates: start: 20171031, end: 20171031
  5. CALONAL [Concomitant]
     Active Substance: ACETAMINOPHEN
     Dosage: 500 MG, UNK
     Route: 048
     Dates: start: 20171031, end: 20171130
  6. MYDRIN-P [Concomitant]
     Active Substance: PHENYLEPHRINE HYDROCHLORIDE\TROPICAMIDE
     Dosage: 0.4 ML, UNK
     Route: 047
     Dates: start: 20170913, end: 20170913
  7. ZINC OXIDE. [Concomitant]
     Active Substance: ZINC OXIDE
     Dosage: UNK
     Route: 061
     Dates: start: 20171214
  8. URIEF [Concomitant]
     Active Substance: SILODOSIN
     Indication: BENIGN PROSTATIC HYPERPLASIA
     Dosage: 8 MG, UNK
     Route: 048
     Dates: end: 20171121
  9. ALDACTONE A [Concomitant]
     Active Substance: SPIRONOLACTONE
     Indication: CARDIAC FAILURE CHRONIC
     Dosage: 12.5 MG, UNK
     Route: 048
     Dates: start: 20171003, end: 20171108
  10. PIARLE [Concomitant]
     Indication: PRIMARY BILIARY CHOLANGITIS
     Dosage: 30 ML, UNK
     Route: 048
     Dates: start: 20170914, end: 20171019
  11. TRAZODONE HYDROCHLORIDE. [Concomitant]
     Active Substance: TRAZODONE HYDROCHLORIDE
     Dosage: 12.5 MG, UNK
     Route: 048
     Dates: start: 20171112, end: 20171201
  12. SODIUM PICOSULFATE [Concomitant]
     Active Substance: SODIUM PICOSULFATE
     Dosage: UNK, PRN
     Route: 048
     Dates: start: 20171016
  13. REBAMIPIDE [Concomitant]
     Active Substance: REBAMIPIDE
     Dosage: 100 MG, UNK
     Route: 048
     Dates: start: 20171031, end: 20171031
  14. AZUNOL [Concomitant]
     Active Substance: SODIUM GUALENATE
     Dosage: 15 GTT, UNK
     Route: 049
     Dates: start: 20171206
  15. ITRIZOLE [Concomitant]
     Active Substance: ITRACONAZOLE
     Dosage: 20 ML, UNK
     Route: 048
     Dates: start: 20170829, end: 20171214
  16. INSULIN GLARGINE [Concomitant]
     Active Substance: INSULIN GLARGINE
     Indication: DIABETES MELLITUS
     Dosage: UNK
     Route: 058
     Dates: start: 20171005, end: 20171123
  17. SAXIZON [Concomitant]
     Active Substance: HYDROCORTISONE SODIUM SUCCINATE
     Dosage: 100 MG, UNK
     Route: 065
     Dates: start: 20170927, end: 20171201
  18. KCL CORRECTIVE [Concomitant]
     Dosage: 10 ML, UNK
     Route: 065
     Dates: start: 20171121, end: 20171207
  19. CANCIDAS [Concomitant]
     Active Substance: CASPOFUNGIN ACETATE
     Dosage: 50 MG, UNK
     Route: 041
     Dates: start: 20171106, end: 20171115
  20. VALACICLOVIR [Concomitant]
     Active Substance: VALACYCLOVIR HYDROCHLORIDE
     Dosage: 500 MG, UNK
     Route: 048
     Dates: start: 20170828, end: 20171113
  21. TENORMIN [Concomitant]
     Active Substance: ATENOLOL
     Indication: HYPERTENSION
     Dosage: 25 MG, UNK
     Route: 048
     Dates: end: 20171104
  22. KETOPROFEN. [Concomitant]
     Active Substance: KETOPROFEN
     Dosage: 1 DF, QD
     Route: 061
     Dates: start: 20170910, end: 20171204
  23. DIAGNOGREEN [Concomitant]
     Dosage: 50 MG, UNK
     Route: 042
     Dates: start: 20171002, end: 20171002
  24. ALFACALCIDOL [Concomitant]
     Active Substance: ALFACALCIDOL
     Dosage: 0.5 MUG, UNK
     Route: 048
     Dates: start: 20171214
  25. NOVOLIN R [Concomitant]
     Active Substance: INSULIN HUMAN
     Indication: DIABETES MELLITUS
     Dosage: UNK
     Route: 058
     Dates: start: 20170828, end: 20180104
  26. NESINA [Concomitant]
     Active Substance: ALOGLIPTIN BENZOATE
     Indication: DIABETES MELLITUS
     Dosage: 12.5 MG, UNK
     Route: 048
     Dates: start: 20170913, end: 20171102
  27. TAURINE [Concomitant]
     Active Substance: TAURINE
     Indication: PRIMARY BILIARY CHOLANGITIS
     Dosage: 3.06 G, UNK
     Route: 048
     Dates: end: 20170918
  28. BENAMBAX [Concomitant]
     Active Substance: PENTAMIDINE
     Dosage: 300 MG, UNK
     Route: 065
     Dates: start: 20171005, end: 20171005
  29. GLYCERIN. [Concomitant]
     Active Substance: GLYCERIN
     Dosage: 60 ML, UNK
     Route: 054
     Dates: start: 20171110, end: 20171206
  30. HYALEIN [Concomitant]
     Active Substance: HYALURONATE SODIUM
     Dosage: UNK, TID
     Route: 047
     Dates: start: 20171219
  31. BUSCOPAN [Concomitant]
     Active Substance: BUTYLSCOPOLAMINE BROMIDE
     Dosage: 20 MG, UNK
     Route: 065
     Dates: start: 20171123, end: 20171126
  32. HEPARIN [Concomitant]
     Active Substance: HEPARIN SODIUM
     Dosage: 10 ML, UNK
     Route: 041
     Dates: start: 20171105, end: 20171119
  33. PREDONINE [Suspect]
     Active Substance: PREDNISOLONE
     Indication: PRODUCT USED FOR UNKNOWN INDICATION
     Dosage: 15 MG, UNK
     Route: 048
     Dates: start: 20170828, end: 20180103
  34. LASIX [Suspect]
     Active Substance: FUROSEMIDE
     Indication: CARDIAC FAILURE CHRONIC
     Dosage: 20 MG, UNK
     Route: 065
     Dates: start: 20170918, end: 20171130
  35. CALORYL [Concomitant]
     Indication: PRIMARY BILIARY CHOLANGITIS
     Dosage: 32.1 G, UNK
     Route: 048
     Dates: end: 20170913
  36. ALLOPURINOL. [Concomitant]
     Active Substance: ALLOPURINOL
     Indication: HYPERURICAEMIA
     Dosage: 100 MG, UNK
     Route: 048
     Dates: end: 20171011
  37. BAYASPIRIN [Concomitant]
     Active Substance: ASPIRIN
     Indication: ANGINA UNSTABLE
     Dosage: 100 MG, UNK
     Route: 048
  38. LIVACT [Concomitant]
     Active Substance: AMINO ACIDS
     Indication: PRIMARY BILIARY CHOLANGITIS
     Dosage: 60 G, UNK
     Route: 048
     Dates: start: 20171026, end: 20171103
  39. LEVOTHYROXINE SODIUM. [Concomitant]
     Active Substance: LEVOTHYROXINE SODIUM
     Dosage: 25 MUG, UNK
     Route: 048
     Dates: start: 20171031
  40. AMITIZA [Concomitant]
     Active Substance: LUBIPROSTONE
     Dosage: 48 MUG, UNK
     Route: 048
     Dates: start: 20171122
  41. VENETLIN [Concomitant]
     Active Substance: ALBUTEROL SULFATE
     Dosage: 0.5 ML, UNK
     Route: 055
     Dates: start: 20171005, end: 20171005
  42. TAKECAB [Concomitant]
     Active Substance: VONOPRAZAN FUMURATE
     Dosage: 10 MG, UNK
     Route: 048
     Dates: start: 20171218
  43. NOVORAPID [Concomitant]
     Active Substance: INSULIN ASPART
     Indication: DIABETES MELLITUS
     Dosage: UNK
     Route: 058
     Dates: start: 20170908, end: 20180104
  44. BFLUID [Concomitant]
     Active Substance: AMINO ACIDS\DEXTROSE\ELECTROLYTES NOS\VITAMINS
     Dosage: 500 ML, UNK
     Route: 041
     Dates: start: 20171114, end: 20171114
  45. FUNGUARD [Concomitant]
     Active Substance: MICAFUNGIN SODIUM
     Dosage: 50 MG, UNK
     Route: 041
     Dates: start: 20171116, end: 20171213
  46. HUMAN SERUM ALBUMIN [Concomitant]
     Active Substance: ALBUMIN HUMAN
     Dosage: 50 ML, UNK
     Route: 042
     Dates: start: 20171102, end: 20171130
  47. SODIUM RABEPRAZOLE [Concomitant]
     Active Substance: RABEPRAZOLE SODIUM
     Dosage: 10 MG, UNK
     Route: 048
     Dates: start: 20170828, end: 20171217
  48. GLAKAY [Concomitant]
     Active Substance: MENATETRENONE
     Indication: MYELODYSPLASTIC SYNDROME
     Dosage: 45 MG, UNK
     Route: 048
     Dates: start: 20170522, end: 20170921
  49. OLMETEC [Concomitant]
     Active Substance: OLMESARTAN MEDOXOMIL
     Indication: HYPERTENSION
     Dosage: 10 MG, UNK
     Route: 048
     Dates: end: 20171221
  50. MOVIPREP [Concomitant]
     Active Substance: ASCORBIC ACID\POLYETHYLENE GLYCOL 3350\POTASSIUM CHLORIDE\SODIUM ASCORBATE\SODIUM CHLORIDE\SODIUM SULFATE
     Dosage: UNK
     Route: 048
     Dates: start: 20171017, end: 20171017
  51. DAIPHEN [Concomitant]
     Active Substance: SULFAMETHOXAZOLE\TRIMETHOPRIM
     Dosage: 0.5 DF, UNK
     Route: 048
     Dates: start: 20170829, end: 20171208
  52. ENDOXAN [Suspect]
     Active Substance: CYCLOPHOSPHAMIDE
     Indication: PRODUCT USED FOR UNKNOWN INDICATION
     Dosage: 50 MG, UNK
     Route: 048
     Dates: start: 20171012, end: 20171117
  53. ROZEREM [Concomitant]
     Active Substance: RAMELTEON
     Dosage: 8 MG, UNK
     Route: 048
     Dates: end: 20171112
  54. URSODEOXYCHOLIC ACID [Concomitant]
     Active Substance: URSODIOL
     Indication: PRIMARY BILIARY CHOLANGITIS
     Dosage: 600 MG, UNK
     Route: 048
  55. XYLOCAINE [Concomitant]
     Active Substance: LIDOCAINE HYDROCHLORIDE
     Dosage: UNK
     Route: 049
     Dates: start: 20171206
  56. ACELIO [Concomitant]
     Active Substance: ACETAMINOPHEN
     Dosage: 500 MG, UNK
     Route: 042
     Dates: start: 20171110, end: 20171206
  57. METABOLIN [Concomitant]
     Dosage: 150 MG, UNK
     Route: 042
     Dates: start: 20171113, end: 20171207
  58. MYSLEE [Concomitant]
     Active Substance: ZOLPIDEM TARTRATE
     Dosage: 5 MG, UNK
     Route: 048
     Dates: end: 20171112
  59. SAMSCA [Concomitant]
     Active Substance: TOLVAPTAN
     Indication: CARDIAC FAILURE CHRONIC
     Dosage: 7.5 MG, UNK
     Route: 048
     Dates: start: 20171010, end: 20171106
  60. FEBURIC [Concomitant]
     Active Substance: FEBUXOSTAT
     Indication: HYPERURICAEMIA
     Dosage: 40 MG, UNK
     Route: 048
     Dates: start: 20170911, end: 20171207
  61. APHTASOLON [Concomitant]
     Dosage: UNK
     Route: 049
     Dates: start: 20171124
  62. AMLODIPINE [Concomitant]
     Active Substance: AMLODIPINE BESYLATE
     Indication: HYPERTENSION
     Dosage: 5 MG, UNK
     Route: 048
     Dates: start: 20171224, end: 20171225
  63. NEO-MINOPHAGEN C [Concomitant]
     Active Substance: AMMONIUM GLYCYRRHIZATE
     Indication: PRIMARY BILIARY CHOLANGITIS
     Dosage: 40 ML, UNK
     Route: 042
     Dates: start: 20180103, end: 20180104
  64. CEFEPIME DIHYDROCHLORIDE [Concomitant]
     Active Substance: CEFEPIME HYDROCHLORIDE
     Dosage: 1 G, UNK
     Route: 042
     Dates: start: 20171031, end: 20171113
  65. GOREISAN [Concomitant]
     Active Substance: HERBALS
     Indication: CARDIAC FAILURE CHRONIC
     Dosage: 6 G, UNK
     Route: 048
     Dates: start: 20170928, end: 20171012

REACTIONS (11)
  - Pneumonia [Recovered/Resolved]
  - Renal impairment [Recovering/Resolving]
  - Constipation [Recovering/Resolving]
  - Fungal infection [Recovered/Resolved]
  - Delirium [Recovering/Resolving]
  - Hypothyroidism [Recovering/Resolving]
  - Oedema [Recovering/Resolving]
  - Hypokalaemia [Recovered/Resolved]
  - Autoimmune haemolytic anaemia [Recovered/Resolved]
  - Vitamin B1 deficiency [Recovered/Resolved]
  - Urinary tract infection [Recovering/Resolving]

NARRATIVE: CASE EVENT DATE: 20170828
